FAERS Safety Report 8932762 (Version 2)
Quarter: 2013Q1

REPORT INFORMATION
  Report Type: Spontaneous
  Country: US (occurrence: US)
  Receive Date: 20121128
  Receipt Date: 20130304
  Transmission Date: 20140127
  Serious: No
  Sender: FDA-Public Use
  Company Number: US-009507513-1211USA001905

PATIENT
  Age: 63 None
  Sex: Male

DRUGS (3)
  1. TICE BCG LIVE [Suspect]
     Indication: BLADDER CANCER
     Dosage: 81 MG, TIW
     Route: 043
     Dates: start: 201209, end: 201209
  2. FLOMAX (MORNIFLUMATE) [Concomitant]
  3. OXYBUTYNIN [Concomitant]

REACTIONS (10)
  - Haematuria [Unknown]
  - Haematuria [Recovered/Resolved]
  - Pain [Unknown]
  - Pain [Recovered/Resolved]
  - Pyrexia [Recovered/Resolved]
  - Chills [Recovered/Resolved]
  - Pyrexia [Unknown]
  - Chills [Unknown]
  - Device infusion issue [Unknown]
  - Underdose [Unknown]
